FAERS Safety Report 15773352 (Version 1)
Quarter: 2018Q4

REPORT INFORMATION
  Report Type: Spontaneous
  Country: CA (occurrence: CA)
  Receive Date: 20181228
  Receipt Date: 20181228
  Transmission Date: 20190205
  Serious: Yes (Other)
  Sender: FDA-Public Use
  Company Number: CA-PFIZER INC-2018528453

PATIENT
  Sex: Female

DRUGS (2)
  1. ADVIL 12 HOUR (CANADA) [Suspect]
     Active Substance: IBUPROFEN
     Indication: PAIN
     Dosage: NORMAL DOSE FOR A MONTH
  2. ADVIL 12 HOUR (CANADA) [Suspect]
     Active Substance: IBUPROFEN
     Dosage: 2 DF, 2X/DAY (2 TABLETS EVERY 12 HOURS)

REACTIONS (7)
  - Urine flow decreased [Unknown]
  - Dyspnoea [Unknown]
  - Haemorrhage [Unknown]
  - Insomnia [Unknown]
  - Arthritis [Unknown]
  - Drug ineffective [Unknown]
  - Heart rate increased [Unknown]
